FAERS Safety Report 13641172 (Version 1)
Quarter: 2017Q2

REPORT INFORMATION
  Report Type: Spontaneous
  Country: US (occurrence: US)
  Receive Date: 20170609
  Receipt Date: 20170609
  Transmission Date: 20170830
  Serious: No
  Sender: FDA-Public Use
  Company Number: None

PATIENT
  Age: 72 Year
  Sex: Female
  Weight: 60.75 kg

DRUGS (2)
  1. CEFUROXIME AXETIL. [Suspect]
     Active Substance: CEFUROXIME AXETIL
     Indication: URINARY TRACT INFECTION
     Dates: start: 20170518, end: 20170518
  2. GUMMY MULTIVITAMINS [Concomitant]

REACTIONS (5)
  - Nausea [None]
  - Dizziness [None]
  - Feeling abnormal [None]
  - Incoherent [None]
  - Hypersomnia [None]

NARRATIVE: CASE EVENT DATE: 20170518
